FAERS Safety Report 23001383 (Version 2)
Quarter: 2023Q4

REPORT INFORMATION
  Report Type: Report from Study
  Country: US (occurrence: US)
  Receive Date: 20230928
  Receipt Date: 20231109
  Transmission Date: 20240110
  Serious: No
  Sender: FDA-Public Use
  Company Number: US-JNJFOC-20230948066

PATIENT
  Age: 43 Year
  Sex: Female

DRUGS (6)
  1. SPRAVATO [Suspect]
     Active Substance: ESKETAMINE
     Indication: Depression
     Dosage: ^56 MG, 9 TOTAL DOSES^
     Dates: start: 20230718, end: 20230818
  2. SPRAVATO [Suspect]
     Active Substance: ESKETAMINE
     Dosage: ^84 MG, 7 TOTAL DOSES^?CONFLICTINGLY MENTIONED AS RECEIVED 84 MG (TWICE A WEEK) DOSE ON 15-SEP-2023
     Dates: start: 20230825, end: 20230914
  3. SPRAVATO [Suspect]
     Active Substance: ESKETAMINE
     Dosage: ^84 MG, 1 TOTAL DOSE^
     Dates: start: 20230919, end: 20230919
  4. FLUVOXAMINE [Concomitant]
     Active Substance: FLUVOXAMINE
     Indication: Depression
     Route: 048
     Dates: start: 20230914
  5. LURASIDONE [Concomitant]
     Active Substance: LURASIDONE
     Indication: Drug therapy
     Route: 048
     Dates: start: 20230908
  6. TRAZODONE [Concomitant]
     Active Substance: TRAZODONE HYDROCHLORIDE
     Indication: Insomnia
     Dosage: 1-2 TABLETS AT NIGHT AS REQUIRED
     Route: 048
     Dates: start: 20230630

REACTIONS (1)
  - Blood pressure increased [Recovered/Resolved]

NARRATIVE: CASE EVENT DATE: 20230919
